FAERS Safety Report 24284577 (Version 2)
Quarter: 2024Q3

REPORT INFORMATION
  Report Type: Report from Study
  Country: US (occurrence: US)
  Receive Date: 20240905
  Receipt Date: 20240911
  Transmission Date: 20241016
  Serious: Yes (Other)
  Sender: NOVARTIS
  Company Number: US-002147023-NVSC2024US070902

PATIENT
  Age: 32 Year
  Sex: Female

DRUGS (8)
  1. KESIMPTA [Suspect]
     Active Substance: OFATUMUMAB
     Indication: Multiple sclerosis
     Dosage: UNK UNK, QMO
     Route: 065
     Dates: start: 20240314
  2. RIZATRIPTAN BENZOATE [Concomitant]
     Active Substance: RIZATRIPTAN BENZOATE
     Indication: Product used for unknown indication
     Dosage: 30 DAYS, 2
     Route: 048
     Dates: start: 20240708
  3. ACETAZOLAM [Concomitant]
     Indication: Product used for unknown indication
     Dosage: 250 MG, 1BID 30 DAYS, 5
     Route: 048
     Dates: start: 20240625
  4. PREGABALIN [Concomitant]
     Active Substance: PREGABALIN
     Indication: Product used for unknown indication
     Dosage: 200 MG, 1BID 30 DAYS, 5
     Route: 048
     Dates: start: 20240515
  5. DULOXETINE HYDROCHLORIDE [Concomitant]
     Active Substance: DULOXETINE HYDROCHLORIDE
     Indication: Product used for unknown indication
     Dosage: 60 MG, 90 DAYS, 1
     Route: 048
     Dates: start: 20221219
  6. TERIZIDONE [Concomitant]
     Active Substance: TERIZIDONE
     Indication: Product used for unknown indication
     Dosage: 50 MG, 1QD 30 DAYS, O
     Route: 048
     Dates: start: 20221014
  7. SOLIFENACIN SUCCINATE [Concomitant]
     Active Substance: SOLIFENACIN SUCCINATE
     Indication: Product used for unknown indication
     Dosage: 10 MG, 1QD 0 DAYS, O
     Route: 048
     Dates: start: 20220826
  8. VITAMIN A + D [Concomitant]
     Indication: Product used for unknown indication
     Dosage: 250.000 UNITS UD 90 DAYS,
     Route: 048
     Dates: start: 20220614

REACTIONS (16)
  - Pelvic inflammatory disease [Recovering/Resolving]
  - Erythema [Unknown]
  - Tenderness [Unknown]
  - Inflammation [Unknown]
  - Vulvovaginal pain [Unknown]
  - Urinary tract infection [Unknown]
  - Injection site pain [Recovered/Resolved]
  - Nasopharyngitis [Unknown]
  - Respiratory tract congestion [Unknown]
  - Sinus congestion [Unknown]
  - Lacrimation increased [Unknown]
  - Hypersensitivity [Unknown]
  - Arthralgia [Unknown]
  - Muscle spasms [Unknown]
  - Fatigue [Unknown]
  - Pollakiuria [Unknown]

NARRATIVE: CASE EVENT DATE: 20240314
